FAERS Safety Report 8620632-4 (Version None)
Quarter: 2012Q3

REPORT INFORMATION
  Report Type: 
  Country: None (occurrence: None)
  Receive Date: 20120824
  Receipt Date: 20120820
  Transmission Date: 20120928
  Serious: Yes (Hospitalization)
  Sender: FDA-Public Use
  Company Number: US-ACTELION-A-US2012-69418

PATIENT
  Age: 33 Year
  Sex: Female

DRUGS (4)
  1. TRACLEER [Concomitant]
     Dosage: UNK
     Route: 048
  2. ARIXTRA [Concomitant]
  3. VENTAVIS [Suspect]
     Indication: PULMONARY ARTERIAL HYPERTENSION
     Dosage: UNK
     Route: 055
  4. SILDENAFIL [Concomitant]

REACTIONS (9)
  - SUBCLAVIAN VEIN THROMBOSIS [None]
  - FATIGUE [None]
  - CHEST PAIN [None]
  - ASTHENIA [None]
  - VASODILATION PROCEDURE [None]
  - DYSPNOEA [None]
  - SWELLING [None]
  - PALPITATIONS [None]
  - JUGULAR VEIN THROMBOSIS [None]
